FAERS Safety Report 13589145 (Version 1)
Quarter: 2017Q2

REPORT INFORMATION
  Report Type: Report from Study
  Country: None (occurrence: US)
  Receive Date: 20170529
  Receipt Date: 20170529
  Transmission Date: 20170830
  Serious: Yes (Other)
  Sender: FDA-Public Use
  Company Number: US-ABBVIE-17K-163-1988946-00

PATIENT
  Age: 58 Year
  Sex: Female

DRUGS (1)
  1. HUMIRA [Suspect]
     Active Substance: ADALIMUMAB
     Indication: RHEUMATOID ARTHRITIS
     Route: 058

REACTIONS (5)
  - Tendon rupture [Unknown]
  - Wound infection staphylococcal [Unknown]
  - Impaired healing [Unknown]
  - Postoperative fever [Unknown]
  - Malaise [Unknown]

NARRATIVE: CASE EVENT DATE: 20170525
